FAERS Safety Report 4464730-8 (Version None)
Quarter: 2004Q3

REPORT INFORMATION
  Report Type: 
  Country: None (occurrence: None)
  Receive Date: 20040929
  Receipt Date: 20040929
  Transmission Date: 20050211
  Serious: Yes (Hospitalization)
  Sender: FDA-Public Use
  Company Number: None

PATIENT
  Sex: Male

DRUGS (8)
  1. TRAZODONE HCL [Suspect]
     Indication: SLEEP DISORDER
     Dosage: 50 MG HS PRN ORAL
     Route: 048
  2. VENLAFAXINE [Concomitant]
  3. RANITIDINE [Concomitant]
  4. METOPROLOL [Concomitant]
  5. METFORMIN [Concomitant]
  6. INSULIN [Concomitant]
  7. GLYBURIDE [Concomitant]
  8. ASPIRIN [Concomitant]

REACTIONS (2)
  - ORTHOSTATIC HYPOTENSION [None]
  - SYNCOPE [None]
